FAERS Safety Report 9322516 (Version 1)
Quarter: 2013Q2

REPORT INFORMATION
  Report Type: Spontaneous
  Country: US (occurrence: US)
  Receive Date: 20130531
  Receipt Date: 20130531
  Transmission Date: 20140414
  Serious: Yes (Other)
  Sender: FDA-Public Use
  Company Number: CHPA2013US009239

PATIENT
  Age: 58 Year
  Sex: Male

DRUGS (2)
  1. THERAFLU DAYTIME SEVERE COLD + COUGH [Suspect]
     Indication: BRONCHITIS
     Dosage: UNK, UNK
     Route: 048
  2. THERAFLU DAYTIME SEVERE COLD + COUGH [Suspect]
     Indication: NASOPHARYNGITIS

REACTIONS (7)
  - Pneumonia [Recovered/Resolved]
  - Pharyngitis streptococcal [Recovering/Resolving]
  - Increased upper airway secretion [Recovering/Resolving]
  - Cough [Recovering/Resolving]
  - Therapeutic response unexpected [Unknown]
  - Drug ineffective for unapproved indication [Unknown]
  - Off label use [Unknown]
